FAERS Safety Report 4696176-1 (Version None)
Quarter: 2005Q2

REPORT INFORMATION
  Report Type: 
  Country: None (occurrence: None)
  Receive Date: 20050620
  Receipt Date: 20050610
  Transmission Date: 20051028
  Serious: Yes (Other)
  Sender: FDA-Public Use
  Company Number: 2005088539

PATIENT
  Sex: Male

DRUGS (1)
  1. DEPO-MEDROL [Suspect]
     Indication: WHIPLASH INJURY

REACTIONS (6)
  - ABDOMINAL DISTENSION [None]
  - ECZEMA [None]
  - FEELING ABNORMAL [None]
  - OCULAR HYPERAEMIA [None]
  - PURPURA [None]
  - TOOTH EXTRACTION [None]
